FAERS Safety Report 4383955-3 (Version None)
Quarter: 2004Q2

REPORT INFORMATION
  Report Type: 
  Country: None (occurrence: None)
  Receive Date: 20040621
  Receipt Date: 20040608
  Transmission Date: 20050107
  Serious: Yes (Hospitalization, Other)
  Sender: FDA-Public Use
  Company Number: 2004037764

PATIENT
  Age: 65 Year
  Sex: Female

DRUGS (12)
  1. HYDROXYZINE HYDROCHLORID [Suspect]
     Indication: ILL-DEFINED DISORDER
     Dosage: 400 MG (2 IN 1 D), ORAL
     Route: 048
  2. LEVOFLOXACIN [Suspect]
     Indication: URINARY TRACT INFECTION
     Dosage: 250 MG (1 IN 1 D), INTRAVENOUS
     Route: 042
  3. HYDROXYCHLOROQUINE SULFATE [Suspect]
     Indication: ILL-DEFINED DISORDER
     Dosage: 400 MG (2 IN 1 D), ORAL
     Route: 048
  4. POTASSIUM CHLORIDE [Suspect]
     Indication: ILL-DEFINED DISORDER
  5. CIPROFLOXACIN [Concomitant]
  6. VANCOMYCIN [Concomitant]
  7. RANITIDINE [Concomitant]
  8. LISINOPRIL [Concomitant]
  9. METOPROLOL (METOPROLOL) [Concomitant]
  10. DILTIAZEM [Concomitant]
  11. HYDROCHLOROTHIAZIDE [Concomitant]
  12. FEXOFENADINE HCL [Concomitant]

REACTIONS (14)
  - BLOOD CREATININE INCREASED [None]
  - BLOOD UREA INCREASED [None]
  - CARDIAC ARREST [None]
  - COMA [None]
  - ELECTROCARDIOGRAM QT CORRECTED INTERVAL PROLONGED [None]
  - HYPERTENSIVE CRISIS [None]
  - HYPOKALAEMIA [None]
  - HYPOMAGNESAEMIA [None]
  - NAUSEA [None]
  - PULSE ABSENT [None]
  - TORSADE DE POINTES [None]
  - URINARY TRACT INFECTION [None]
  - VENTRICULAR TACHYCARDIA [None]
  - VOMITING [None]
